FAERS Safety Report 5823096-9 (Version None)
Quarter: 2008Q3

REPORT INFORMATION
  Report Type: 
  Country: None (occurrence: None)
  Receive Date: 20080725
  Receipt Date: 20070802
  Transmission Date: 20090109
  Serious: No
  Sender: FDA-Public Use
  Company Number: US-AMGEN-KDL237198

PATIENT
  Sex: Female
  Weight: 54.5 kg

DRUGS (5)
  1. PROCRIT [Suspect]
     Indication: RENAL FAILURE CHRONIC
     Dates: start: 20060101
  2. CYCLOSPORINE [Concomitant]
     Dates: start: 19980301
  3. PREDNISONE TAB [Concomitant]
     Dates: start: 19980301
  4. LASIX [Concomitant]
     Dates: start: 19980301
  5. UNSPECIFIED MEDICATION [Concomitant]

REACTIONS (5)
  - ARTHRALGIA [None]
  - DRY SKIN [None]
  - HOT FLUSH [None]
  - MOUTH ULCERATION [None]
  - SKIN EXFOLIATION [None]
